FAERS Safety Report 8278214 (Version 4)
Quarter: 2014Q4

REPORT INFORMATION
  Report Type: Spontaneous
  Country: JP (occurrence: JP)
  Receive Date: 20111207
  Receipt Date: 20141014
  Transmission Date: 20150529
  Serious: Yes (Hospitalization)
  Sender: FDA-Public Use
  Company Number: JP-B.I. PHARMACEUTICALS,INC./RIDGEFIELD-2011-EU-00864GD

PATIENT
  Sex: Female

DRUGS (5)
  1. DIDANOSINE. [Suspect]
     Active Substance: DIDANOSINE
     Indication: HIV INFECTION
     Route: 065
     Dates: start: 200007, end: 2005
  2. NEVIRAPINE. [Suspect]
     Active Substance: NEVIRAPINE
     Indication: HIV INFECTION
     Route: 065
     Dates: start: 200007
  3. LAMIVUDINE. [Suspect]
     Active Substance: LAMIVUDINE
     Indication: HIV INFECTION
     Route: 065
     Dates: start: 2005, end: 201010
  4. TENOFOVIR [Suspect]
     Active Substance: TENOFOVIR
     Indication: HIV INFECTION
     Route: 065
     Dates: start: 2005
  5. LAMIVUDINE. [Suspect]
     Active Substance: LAMIVUDINE
     Route: 065
     Dates: start: 1999, end: 200007

REACTIONS (7)
  - Portal hypertension [Unknown]
  - Hepatic enzyme increased [Recovered/Resolved]
  - Anaemia [Unknown]
  - Varices oesophageal [Unknown]
  - Large intestinal haemorrhage [Unknown]
  - Melaena [Recovered/Resolved]
  - Ascites [Unknown]

NARRATIVE: CASE EVENT DATE: 2009
